FAERS Safety Report 9916101 (Version 1)
Quarter: 2014Q1

REPORT INFORMATION
  Report Type: Spontaneous
  Country: FR (occurrence: FR)
  Receive Date: 20140221
  Receipt Date: 20140221
  Transmission Date: 20141002
  Serious: Yes (Life-Threatening, Hospitalization)
  Sender: FDA-Public Use
  Company Number: FR-BAYER-2014-021089

PATIENT
  Age: 48 Year
  Sex: Female

DRUGS (3)
  1. CIFLOX [Suspect]
     Indication: INFECTION PROPHYLAXIS
     Dosage: 750 MG, QD
     Route: 048
     Dates: start: 20131222, end: 20140109
  2. BACTRIM-FORTE [Suspect]
     Indication: INFECTION PROPHYLAXIS
     Dosage: 1 DF, TID
     Route: 048
     Dates: start: 20131222, end: 20140109
  3. INNOHEP [Concomitant]
     Dosage: UNK
     Route: 058
     Dates: start: 20131202, end: 20131231

REACTIONS (2)
  - Interstitial lung disease [Not Recovered/Not Resolved]
  - Interstitial lung disease [Not Recovered/Not Resolved]
